FAERS Safety Report 13163168 (Version 1)
Quarter: 2017Q1

REPORT INFORMATION
  Report Type: Report from Study
  Country: None (occurrence: US)
  Receive Date: 20170130
  Receipt Date: 20170130
  Transmission Date: 20170428
  Serious: Yes (Hospitalization)
  Sender: FDA-Public Use
  Company Number: US-ABBVIE-17P-163-1856673-00

PATIENT
  Age: 2 Month
  Sex: Female

DRUGS (1)
  1. SYNAGIS [Suspect]
     Active Substance: PALIVIZUMAB
     Indication: LARGE FOR DATES BABY
     Route: 030
     Dates: start: 20161107

REACTIONS (1)
  - Respiratory distress [Unknown]

NARRATIVE: CASE EVENT DATE: 20161209
